FAERS Safety Report 4992271-8 (Version None)
Quarter: 2006Q2

REPORT INFORMATION
  Report Type: 
  Country: None (occurrence: None)
  Receive Date: 20060502
  Receipt Date: 20060420
  Transmission Date: 20061013
  Serious: Yes (Hospitalization)
  Sender: FDA-Public Use
  Company Number: CLOF-10226

PATIENT
  Age: 5 Year
  Sex: Male
  Weight: 18.2 kg

DRUGS (7)
  1. CLOFARABINE [Suspect]
     Indication: T-CELL TYPE ACUTE LEUKAEMIA
     Dosage: 15 MG IV
     Route: 042
     Dates: start: 20060311, end: 20060412
  2. ETOPOSIDE [Suspect]
     Indication: T-CELL TYPE ACUTE LEUKAEMIA
     Dosage: 56 MG IV
     Route: 042
     Dates: start: 20060311, end: 20060412
  3. CYCLOPHOSPHAMIDE [Suspect]
     Indication: T-CELL TYPE ACUTE LEUKAEMIA
     Dosage: 255 MG IV
     Route: 042
     Dates: start: 20060311, end: 20060412
  4. DAPSONE [Concomitant]
  5. NEUPOGEN [Concomitant]
  6. CIPROFLOXIN [Concomitant]
  7. FLUCONAZOLE [Concomitant]

REACTIONS (2)
  - CYSTITIS [None]
  - FEBRILE NEUTROPENIA [None]
